FAERS Safety Report 8806744 (Version 2)
Quarter: 2012Q4

REPORT INFORMATION
  Report Type: 
  Country: DE (occurrence: DE)
  Receive Date: 20120925
  Receipt Date: 20121031
  Transmission Date: 20130627
  Serious: Yes (Hospitalization, Other)
  Sender: FDA-Public Use
  Company Number: PHHY2012DE081748

PATIENT
  Age: 32 Year
  Sex: Male

DRUGS (2)
  1. CIPROFLOXACIN [Suspect]
     Indication: URINARY TRACT INFECTION
     Dosage: 250 mg, BID
     Route: 048
  2. FLECAINIDE [Interacting]
     Indication: ARRHYTHMIA

REACTIONS (3)
  - Torsade de pointes [Recovered/Resolved]
  - Ventricular tachycardia [Recovered/Resolved]
  - Drug interaction [Unknown]
